FAERS Safety Report 7269834-2 (Version None)
Quarter: 2011Q1

REPORT INFORMATION
  Report Type: 
  Country: None (occurrence: None)
  Receive Date: 20110125
  Receipt Date: 20110125
  Transmission Date: 20110831
  Serious: No
  Sender: FDA-Public Use
  Company Number: None

PATIENT
  Age: 53 Year
  Sex: Male
  Weight: 109 kg

DRUGS (1)
  1. CERTOLIZUMAB [Suspect]
     Indication: POLYARTHRITIS
     Dates: start: 20100722, end: 20100921

REACTIONS (9)
  - PRURITUS [None]
  - URTICARIA [None]
  - ERYTHEMA [None]
  - RASH [None]
  - SKIN EXFOLIATION [None]
  - JOINT SWELLING [None]
  - BURNING SENSATION [None]
  - PAIN [None]
  - ARTHRALGIA [None]
